FAERS Safety Report 8497629-0 (Version None)
Quarter: 2012Q3

REPORT INFORMATION
  Report Type: 
  Country: None (occurrence: None)
  Receive Date: 20120709
  Receipt Date: 20120612
  Transmission Date: 20120928
  Serious: No
  Sender: FDA-Public Use
  Company Number: US-AMGEN-USASP2011050838

PATIENT
  Age: 39 Year
  Sex: Male

DRUGS (2)
  1. ENBREL [Suspect]
     Indication: PSORIASIS
     Dosage: 50 MG, QWK
     Route: 058
     Dates: start: 20040303
  2. ENBREL [Suspect]
     Dosage: 50 MG, QWK
     Dates: start: 20030207, end: 20110701

REACTIONS (3)
  - NASOPHARYNGITIS [None]
  - PSORIASIS [None]
  - COUGH [None]
